FAERS Safety Report 8370046-X (Version None)
Quarter: 2012Q2

REPORT INFORMATION
  Report Type: 
  Country: None (occurrence: None)
  Receive Date: 20120518
  Receipt Date: 20120517
  Transmission Date: 20120825
  Serious: Yes (Death)
  Sender: FDA-Public Use
  Company Number: PHHY2011GT80327

PATIENT
  Age: 64 Year
  Sex: Female

DRUGS (2)
  1. FORADIL [Suspect]
     Indication: ASTHMA
     Dosage: 1 DF, BID
     Dates: start: 19980101
  2. GLISULIN [Concomitant]
     Dosage: 850 MG, Q12H
     Route: 048

REACTIONS (1)
  - MYOCARDIAL INFARCTION [None]
